FAERS Safety Report 15297388 (Version 4)
Quarter: 2018Q4

REPORT INFORMATION
  Report Type: Spontaneous
  Country: US (occurrence: US)
  Receive Date: 20180820
  Receipt Date: 20181001
  Transmission Date: 20190204
  Serious: Yes (Other)
  Sender: FDA-Public Use
  Company Number: US-GLAXOSMITHKLINE-US2018146892

PATIENT
  Sex: Female

DRUGS (7)
  1. ADVAIR DISKUS [Suspect]
     Active Substance: FLUTICASONE PROPIONATE\SALMETEROL XINAFOATE
     Dosage: UNK (500/50)
     Dates: start: 2010
  2. PREDNISONE. [Suspect]
     Active Substance: PREDNISONE
     Indication: PNEUMONIA
     Dosage: UNK
  3. ZITHROMAX [Suspect]
     Active Substance: AZITHROMYCIN DIHYDRATE
     Indication: PNEUMONIA
     Dosage: UNK
  4. ADVAIR DISKUS [Suspect]
     Active Substance: FLUTICASONE PROPIONATE\SALMETEROL XINAFOATE
     Indication: BRONCHITIS
     Dosage: 1 PUFF(S), BID (250/50)
     Route: 055
     Dates: start: 2000
  5. INCRUSE ELLIPTA [Suspect]
     Active Substance: UMECLIDINIUM BROMIDE
     Indication: BRONCHITIS
     Dosage: 1 PUFF(S), 1D
     Route: 055
     Dates: start: 2016
  6. PROAIR RESPICLICK [Suspect]
     Active Substance: ALBUTEROL SULFATE
     Indication: PRODUCT USED FOR UNKNOWN INDICATION
     Dosage: UNK
  7. OXYGEN. [Suspect]
     Active Substance: OXYGEN
     Indication: SLEEP APNOEA SYNDROME
     Dosage: UNK
     Dates: start: 2013

REACTIONS (8)
  - Condition aggravated [Recovering/Resolving]
  - Sleep apnoea syndrome [Not Recovered/Not Resolved]
  - Dry mouth [Not Recovered/Not Resolved]
  - Chronic obstructive pulmonary disease [Unknown]
  - Pneumonia [Recovering/Resolving]
  - Bronchitis [Recovering/Resolving]
  - Dyspnoea [Recovering/Resolving]
  - Malaise [Recovering/Resolving]
